FAERS Safety Report 6428095-4 (Version None)
Quarter: 2009Q4

REPORT INFORMATION
  Report Type: 
  Country: None (occurrence: None)
  Receive Date: 20091105
  Receipt Date: 20091026
  Transmission Date: 20100525
  Serious: Yes (Death)
  Sender: FDA-Public Use
  Company Number: US-AMGEN-US371243

PATIENT
  Weight: 0.54 kg

DRUGS (14)
  1. ENBREL [Suspect]
     Indication: PSORIASIS
     Route: 064
     Dates: start: 20070119, end: 20070728
  2. VITAMIN TAB [Concomitant]
     Route: 064
     Dates: start: 20070420, end: 20070728
  3. CAFFEINE [Concomitant]
     Route: 064
     Dates: start: 20070119, end: 20070413
  4. ALCOHOL [Concomitant]
     Route: 064
     Dates: start: 20070228, end: 20070228
  5. PROZAC [Concomitant]
     Route: 064
     Dates: start: 20070407, end: 20070728
  6. CELEXA [Concomitant]
     Route: 064
     Dates: start: 20070307, end: 20070312
  7. GEODON [Concomitant]
     Route: 064
     Dates: start: 20070301, end: 20070308
  8. ABILIFY [Concomitant]
     Route: 064
     Dates: start: 20070309, end: 20070316
  9. CLONAZEPAM [Concomitant]
     Route: 064
     Dates: start: 20070307, end: 20070417
  10. VICODIN [Concomitant]
     Route: 064
     Dates: start: 20070119, end: 20070413
  11. PERCOCET [Concomitant]
     Route: 064
     Dates: start: 20070119, end: 20070413
  12. ROZEREM [Concomitant]
     Route: 064
     Dates: start: 20070215, end: 20070307
  13. BENADRYL [Concomitant]
     Route: 064
  14. TYLENOL [Concomitant]
     Route: 064
     Dates: start: 20070413, end: 20070503

REACTIONS (1)
  - IMMATURE RESPIRATORY SYSTEM [None]
